FAERS Safety Report 10070434 (Version 1)
Quarter: 2014Q2

REPORT INFORMATION
  Report Type: Spontaneous
  Country: US (occurrence: None)
  Receive Date: 20140409
  Receipt Date: 20140409
  Transmission Date: 20141212
  Serious: Yes (Other)
  Sender: FDA-Public Use
  Company Number: None

PATIENT
  Age: 53 Year
  Sex: Female

DRUGS (2)
  1. SOVALDI [Suspect]
     Indication: HEPATITIS C
     Route: 048
     Dates: start: 20140225
  2. RIBAVIRIN [Concomitant]

REACTIONS (4)
  - Dysarthria [None]
  - Visual impairment [None]
  - Memory impairment [None]
  - Asthenia [None]
